FAERS Safety Report 23960678 (Version 5)
Quarter: 2025Q1

REPORT INFORMATION
  Report Type: Spontaneous
  Country: US (occurrence: US)
  Receive Date: 20240611
  Receipt Date: 20250221
  Transmission Date: 20250409
  Serious: Yes (Hospitalization)
  Sender: CATALYST PHARMA
  Company Number: US-CATALYST PHARMACEUTICALS-US-CATA-24-00511

PATIENT
  Sex: Male
  Weight: 52.834 kg

DRUGS (19)
  1. AGAMREE [Suspect]
     Active Substance: VAMOROLONE
     Indication: Duchenne muscular dystrophy
     Dosage: 7 ML ONCE A DAY
     Route: 048
     Dates: start: 20240516, end: 20240823
  2. AGAMREE [Suspect]
     Active Substance: VAMOROLONE
     Dosage: 3.5 ML ONCE A DAY
     Route: 048
     Dates: start: 20240823
  3. AGAMREE [Suspect]
     Active Substance: VAMOROLONE
     Dates: start: 2024
  4. ACETAMINOPHEN [Concomitant]
     Active Substance: ACETAMINOPHEN
     Indication: Pain
     Route: 065
  5. ACETAMINOPHEN [Concomitant]
     Active Substance: ACETAMINOPHEN
     Route: 048
  6. ALBUTEROL SULFATE [Concomitant]
     Active Substance: ALBUTEROL SULFATE
     Indication: Asthma
     Dosage: 1 VIAL EVERY 8 HRS
     Route: 055
  7. BENADRYL ALLERGY CHILDREN^S [Concomitant]
     Indication: Dermatitis
     Dosage: 5 ML WEEKLY
     Route: 048
  8. BUDESONIDE [Concomitant]
     Active Substance: BUDESONIDE
     Indication: Asthma
     Dosage: 1 VIAL EVERY 12 HOURS
     Route: 055
  9. COENZYME Q10 [Concomitant]
     Active Substance: DIETARY SUPPLEMENT\UBIDECARENONE
     Indication: Hypovitaminosis
     Dosage: 600 MG ONCE A DAY
     Route: 048
  10. EXONDYS 51 [Concomitant]
     Active Substance: ETEPLIRSEN
     Indication: Duchenne muscular dystrophy
     Dosage: 10 MG WEEKLY
     Route: 042
  11. FAMOTIDINE [Concomitant]
     Active Substance: FAMOTIDINE
     Indication: Gastrooesophageal reflux disease
     Dosage: 20 MG ONCE A DAY
     Route: 065
  12. FOLIC ACID [Concomitant]
     Active Substance: FOLIC ACID
     Indication: Hypovitaminosis
     Dosage: 1 MG ONCE A DAY
     Route: 048
  13. MAGNESIUM [Concomitant]
     Active Substance: MAGNESIUM
     Indication: Hypovitaminosis
     Dosage: 100 MG ONCE A DAY
     Route: 048
  14. PREDNISONE [Concomitant]
     Active Substance: PREDNISONE
     Indication: Duchenne muscular dystrophy
     Dosage: 20 MG IN THE EVENING
     Route: 048
  15. SYNTHROID [Concomitant]
     Active Substance: LEVOTHYROXINE SODIUM
     Indication: Hypothyroidism
     Dosage: 50 MCG DAILY
     Route: 048
  16. VITAMIN D3 [Concomitant]
     Active Substance: CHOLECALCIFEROL
     Indication: Hypovitaminosis
     Dosage: 200 UNITS DAILY
     Route: 065
  17. VITAMIN D3 [Concomitant]
     Active Substance: CHOLECALCIFEROL
     Route: 048
  18. VASOTEC [Concomitant]
     Active Substance: ENALAPRIL MALEATE
     Indication: Cardiovascular disorder
     Route: 048
  19. FUROSEMIDE [Concomitant]
     Active Substance: FUROSEMIDE
     Indication: Cardiovascular disorder
     Dosage: DAILY
     Route: 048

REACTIONS (9)
  - Heart rate increased [Unknown]
  - Tracheal disorder [Not Recovered/Not Resolved]
  - Respiratory complication associated with device [Recovered/Resolved]
  - Tracheostomy [Recovered/Resolved]
  - Gastrostomy [Recovered/Resolved]
  - Eating disorder [Recovering/Resolving]
  - Pneumonia [Recovered/Resolved]
  - Pneumonia [Recovered/Resolved]
  - Off label use [Unknown]

NARRATIVE: CASE EVENT DATE: 20240101
